FAERS Safety Report 5661822-2 (Version None)
Quarter: 2008Q1

REPORT INFORMATION
  Report Type: 
  Country: None (occurrence: None)
  Receive Date: 20080312
  Receipt Date: 20080305
  Transmission Date: 20080703
  Serious: Yes (Death)
  Sender: FDA-Public Use
  Company Number: US-MERCK-0803USA00882

PATIENT

DRUGS (1)
  1. SINGULAIR [Suspect]
     Route: 065

REACTIONS (1)
  - COMPLETED SUICIDE [None]
